FAERS Safety Report 5033645-9 (Version None)
Quarter: 2006Q2

REPORT INFORMATION
  Report Type: 
  Country: None (occurrence: None)
  Receive Date: 20060518
  Receipt Date: 20050502
  Transmission Date: 20061013
  Serious: Yes (Other)
  Sender: FDA-Public Use
  Company Number: 2005069540

PATIENT
  Sex: Female
  Weight: 56.6996 kg

DRUGS (3)
  1. DEPO-PROVERA [Suspect]
     Indication: CONTRACEPTION
     Dosage: INTRAMUSCULAR
     Route: 030
     Dates: end: 20040524
  2. FLUVOXAMINE MALEATE [Concomitant]
  3. BUSPIRONE HCL [Concomitant]

REACTIONS (2)
  - AMENORRHOEA [None]
  - OSTEOPOROSIS [None]
